FAERS Safety Report 8506077-6 (Version None)
Quarter: 2012Q3

REPORT INFORMATION
  Report Type: 
  Country: None (occurrence: None)
  Receive Date: 20120712
  Receipt Date: 20120703
  Transmission Date: 20120928
  Serious: Yes (Hospitalization)
  Sender: FDA-Public Use
  Company Number: US-ASTRAZENECA-2011SE69898

PATIENT
  Age: 50 Year
  Sex: Female

DRUGS (1)
  1. NEXIUM [Suspect]
     Route: 048

REACTIONS (10)
  - ABDOMINAL DISCOMFORT [None]
  - ACCIDENT AT WORK [None]
  - FEELING ABNORMAL [None]
  - VOMITING [None]
  - DRUG DOSE OMISSION [None]
  - ASPIRATION [None]
  - STRESS [None]
  - GASTROOESOPHAGEAL REFLUX DISEASE [None]
  - SLEEP DISORDER DUE TO A GENERAL MEDICAL CONDITION [None]
  - MALAISE [None]
